FAERS Safety Report 17648864 (Version 2)
Quarter: 2020Q2

REPORT INFORMATION
  Report Type: Spontaneous
  Country: DE (occurrence: DE)
  Receive Date: 20200408
  Receipt Date: 20200413
  Transmission Date: 20200713
  Serious: Yes (Hospitalization)
  Sender: FDA-Public Use
  Company Number: DE-PFIZER INC-2020136453

PATIENT
  Sex: Female
  Weight: 73 kg

DRUGS (7)
  1. MEZAVANT [Concomitant]
     Active Substance: MESALAMINE
     Dosage: UNK
     Dates: start: 20171208
  2. ZESSLY [Suspect]
     Active Substance: INFLIXIMAB
     Dosage: 365 MG, UNK
     Route: 065
     Dates: start: 20191009
  3. ZESSLY [Suspect]
     Active Substance: INFLIXIMAB
     Dosage: 700 MG, UNK
     Route: 065
     Dates: start: 20191204
  4. ASPIRIN. [Concomitant]
     Active Substance: ASPIRIN
     Dosage: 100 MG, UNK
  5. ZESSLY [Suspect]
     Active Substance: INFLIXIMAB
     Dosage: 365 MG, UNK
     Route: 065
     Dates: start: 20191018
  6. DEKRISTOL [Concomitant]
     Active Substance: CHOLECALCIFEROL
     Dosage: 20 IU, UNK
  7. SELENASE [SELENIDE SODIUM] [Concomitant]
     Dosage: UNK
     Dates: start: 20191010

REACTIONS (2)
  - Therapy partial responder [Unknown]
  - Cytomegalovirus colitis [Recovered/Resolved]

NARRATIVE: CASE EVENT DATE: 20200112
